FAERS Safety Report 9325580 (Version 2)
Quarter: 2014Q2

REPORT INFORMATION
  Report Type: Report from Study
  Country: AR (occurrence: AR)
  Receive Date: 20130604
  Receipt Date: 20140611
  Transmission Date: 20141212
  Serious: Yes (Other)
  Sender: FDA-Public Use
  Company Number: PHHY2013AR055944

PATIENT
  Sex: Female

DRUGS (1)
  1. DIOVAN [Suspect]
     Indication: HYPERTENSION
     Dosage: 2 DF (80MG), A DAY
     Route: 048

REACTIONS (4)
  - Fall [Recovering/Resolving]
  - Upper limb fracture [Recovering/Resolving]
  - Wrist fracture [Recovering/Resolving]
  - Malaise [Unknown]
